FAERS Safety Report 9893268 (Version 2)
Quarter: 2014Q1

REPORT INFORMATION
  Report Type: Spontaneous
  Country: US (occurrence: US)
  Receive Date: 20140213
  Receipt Date: 20140228
  Transmission Date: 20141002
  Serious: Yes (Other)
  Sender: FDA-Public Use
  Company Number: US-009507513-1402USA003807

PATIENT
  Age: 20 Year
  Sex: Male

DRUGS (1)
  1. INVANZ [Suspect]
     Indication: INFECTION
     Dosage: 1 G, QD, INFUSED OVER A 30 MINUTE TIME FRAME, INVANZ VIAL WITH THREADED PORT (EA)
     Route: 042
     Dates: start: 20140123, end: 201402

REACTIONS (2)
  - Loss of consciousness [Recovered/Resolved]
  - Convulsion [Unknown]
